FAERS Safety Report 8302051-3 (Version None)
Quarter: 2012Q2

REPORT INFORMATION
  Report Type: 
  Country: None (occurrence: None)
  Receive Date: 20120418
  Receipt Date: 20120402
  Transmission Date: 20120825
  Serious: Yes (Hospitalization)
  Sender: FDA-Public Use
  Company Number: 2012PROUSA01241

PATIENT
  Age: 77 Year
  Sex: Male
  Weight: 113.4 kg

DRUGS (8)
  1. PREDELTIN (PREDNISONE) [Concomitant]
  2. PROVENGE [Suspect]
     Indication: PROSTATE CANCER METASTATIC
     Dosage: 250 ML, SINGLE, INTRAVENOUS
     Route: 042
     Dates: start: 20120330, end: 20120330
  3. CITALOPRAM HYDROBROMIDE [Concomitant]
  4. RANITIDINE HYDROCHLORIDE [Concomitant]
  5. ABIRATERONE (ABIRATERONE) [Concomitant]
  6. MULTIVITAMIN /00097801/ (ASCORBIC ACID, CALCIUM PANTOTHENATE, ERGOCALC [Concomitant]
  7. LORTAB [Concomitant]
  8. CHLORHEXIDINE GLUCONATE [Concomitant]

REACTIONS (10)
  - FEMORAL NECK FRACTURE [None]
  - HIP FRACTURE [None]
  - URINARY TRACT INFECTION [None]
  - FALL [None]
  - JOINT EFFUSION [None]
  - WOUND [None]
  - CONFUSIONAL STATE [None]
  - METASTASES TO MUSCLE [None]
  - FRACTURE DISPLACEMENT [None]
  - METASTASES TO BONE [None]
